FAERS Safety Report 23082638 (Version 2)
Quarter: 2023Q4

REPORT INFORMATION
  Report Type: Spontaneous
  Country: JP (occurrence: JP)
  Receive Date: 20231019
  Receipt Date: 20231120
  Transmission Date: 20240110
  Serious: Yes (Other)
  Sender: FDA-Public Use
  Company Number: JP-TAKEDA-2023TJP013629

PATIENT

DRUGS (2)
  1. ZEJULA [Suspect]
     Active Substance: NIRAPARIB
     Indication: Ovarian cancer
     Dosage: 200 MG(200 MILLIGRAM)
     Route: 048
     Dates: start: 20231002, end: 20231016
  2. ZEJULA [Suspect]
     Active Substance: NIRAPARIB
     Dosage: 100 MG(100 MILLIGRAM)
     Route: 048
     Dates: start: 20231017

REACTIONS (1)
  - Renal impairment [Not Recovered/Not Resolved]

NARRATIVE: CASE EVENT DATE: 20231017
